FAERS Safety Report 8488311-4 (Version None)
Quarter: 2012Q3

REPORT INFORMATION
  Report Type: 
  Country: None (occurrence: None)
  Receive Date: 20120705
  Receipt Date: 20120703
  Transmission Date: 20120928
  Serious: Yes (Death, Other)
  Sender: FDA-Public Use
  Company Number: PHEH2009US10768

PATIENT
  Sex: Male

DRUGS (13)
  1. DEXAMETHASONE SODIUM PHOSPHATE [Concomitant]
  2. BACTRIM [Concomitant]
  3. CYMBALTA [Concomitant]
  4. EFFEXOR [Concomitant]
  5. ASPIRIN [Concomitant]
  6. PROTONIX [Concomitant]
  7. XANAX [Concomitant]
  8. REVLIMID [Concomitant]
  9. OXYCODONE HCL AND ACETAMINOPHEN [Concomitant]
  10. ZOMETA [Suspect]
  11. PROSCAR [Concomitant]
  12. AREDIA [Suspect]
     Route: 042
  13. NEXIUM [Concomitant]

REACTIONS (26)
  - OSTEOMYELITIS [None]
  - NEOPLASM MALIGNANT [None]
  - MUSCULOSKELETAL DISCOMFORT [None]
  - OBSTRUCTIVE AIRWAYS DISORDER [None]
  - BARRETT'S OESOPHAGUS [None]
  - OSTEOARTHRITIS [None]
  - PARAESTHESIA [None]
  - GINGIVITIS [None]
  - DYSPNOEA [None]
  - PULMONARY MASS [None]
  - DIVERTICULUM OESOPHAGEAL [None]
  - GASTROOESOPHAGEAL REFLUX DISEASE [None]
  - GINGIVAL BLEEDING [None]
  - OESOPHAGEAL ULCER [None]
  - OSTEITIS [None]
  - LUNG ADENOCARCINOMA STAGE III [None]
  - METASTASES TO ADRENALS [None]
  - MENTAL STATUS CHANGES [None]
  - EXPOSED BONE IN JAW [None]
  - TOOTH LOSS [None]
  - GASTRIC ULCER [None]
  - OSTEONECROSIS OF JAW [None]
  - LYMPHADENOPATHY MEDIASTINAL [None]
  - HIATUS HERNIA [None]
  - RIB FRACTURE [None]
  - METASTASES TO BONE [None]
